FAERS Safety Report 10092171 (Version 1)
Quarter: 2014Q2

REPORT INFORMATION
  Report Type: Spontaneous
  Country: US (occurrence: US)
  Receive Date: 20140421
  Receipt Date: 20140421
  Transmission Date: 20141212
  Serious: No
  Sender: FDA-Public Use
  Company Number: US-SANOFI-AVENTIS-2013SA037279

PATIENT
  Age: 63 Year
  Sex: Female
  Weight: 74 kg

DRUGS (5)
  1. ALLEGRA [Suspect]
     Indication: SWELLING FACE
  2. SUTENT [Suspect]
     Dates: start: 201203
  3. SUTENT [Suspect]
     Dates: start: 201204
  4. LISINOPRIL [Concomitant]
     Indication: BLOOD PRESSURE
  5. LEVOTHYROXINE [Concomitant]

REACTIONS (7)
  - Nasopharyngitis [Unknown]
  - Sinus disorder [Unknown]
  - Yellow skin [Recovered/Resolved]
  - Swelling face [Recovered/Resolved]
  - Fatigue [Recovered/Resolved]
  - Rash [Recovered/Resolved]
  - Somnolence [Recovered/Resolved]
